FAERS Safety Report 25078260 (Version 2)
Quarter: 2025Q2

REPORT INFORMATION
  Report Type: Spontaneous
  Country: CA (occurrence: CA)
  Receive Date: 20250314
  Receipt Date: 20250403
  Transmission Date: 20250716
  Serious: Yes (Other)
  Sender: AMERICAN REGENT
  Company Number: CA-AMERICAN REGENT INC-2025001056

PATIENT
  Sex: Female

DRUGS (3)
  1. VENOFER [Suspect]
     Active Substance: IRON SUCROSE
     Indication: Product used for unknown indication
     Dates: start: 20240920, end: 20240920
  2. VENOFER [Suspect]
     Active Substance: IRON SUCROSE
     Dates: start: 20241011, end: 20241011
  3. VENOFER [Suspect]
     Active Substance: IRON SUCROSE
     Dates: start: 20241020, end: 20241020

REACTIONS (7)
  - Muscle contractions involuntary [Unknown]
  - Hypoaesthesia [Unknown]
  - Chest pain [Unknown]
  - Dizziness [Unknown]
  - Chest discomfort [Unknown]
  - Headache [Unknown]
  - Off label use [Unknown]

NARRATIVE: CASE EVENT DATE: 20240920
